FAERS Safety Report 7463927-2 (Version None)
Quarter: 2011Q2

REPORT INFORMATION
  Report Type: 
  Country: None (occurrence: None)
  Receive Date: 20110506
  Receipt Date: 20110502
  Transmission Date: 20111010
  Serious: Yes (Hospitalization)
  Sender: FDA-Public Use
  Company Number: US-GILEAD-2010-0034705

PATIENT
  Sex: Male

DRUGS (22)
  1. REVATIO [Concomitant]
  2. MICARDIS [Concomitant]
  3. ADVAIR DISKUS 100/50 [Concomitant]
  4. GABAPENTIN [Concomitant]
  5. GLIPIZIDE [Concomitant]
  6. CARDIZEM [Concomitant]
  7. LETAIRIS [Suspect]
     Indication: PULMONARY HYPERTENSION
  8. SIMVASTATIN [Concomitant]
  9. TELMISARTAN [Concomitant]
  10. FENOFIBRATE [Concomitant]
  11. OXYGEN [Concomitant]
  12. PAROXETINE HCL [Concomitant]
  13. AZITHROMYCIN [Concomitant]
  14. LISINOPRIL [Concomitant]
  15. METOPROLOL SUCCINATE [Concomitant]
  16. LETAIRIS [Suspect]
     Indication: PULMONARY ARTERIAL HYPERTENSION
     Route: 048
     Dates: start: 20101119, end: 20101220
  17. SPIRIVA WITH HANDIHALER [Concomitant]
  18. LOPERAMIDE [Concomitant]
  19. TRIAMCINOLONE ACETONIDE [Concomitant]
  20. CYANOCOBALAMIN [Concomitant]
  21. ALBUTEROL SULFATE [Concomitant]
  22. TIOTROPIUM BROMIDE [Concomitant]

REACTIONS (1)
  - ATRIAL FIBRILLATION [None]
